FAERS Safety Report 9820400 (Version 1)
Quarter: 2013Q4

REPORT INFORMATION
  Report Type: Spontaneous
  Country: US (occurrence: None)
  Receive Date: 20131028
  Receipt Date: 20131028
  Transmission Date: 20140711
  Serious: Yes (Other)
  Sender: FDA-Public Use
  Company Number: SYM-2013-03461

PATIENT
  Age: 51 Year
  Sex: Female
  Weight: 56 kg

DRUGS (9)
  1. BUPROPION HYDROCHLORIDE [Suspect]
     Indication: SMOKING CESSATION THERAPY
     Route: 048
     Dates: start: 20120808, end: 20121029
  2. VARENICLINE TARTRATE [Suspect]
     Indication: SMOKING CESSATION THERAPY
     Route: 048
     Dates: start: 20120808, end: 20121029
  3. NICOTINE [Suspect]
     Indication: SMOKING CESSATION THERAPY
     Route: 062
     Dates: start: 20120815, end: 20121029
  4. PLACEBO [Suspect]
     Indication: SMOKING CESSATION THERAPY
     Dates: start: 20120808, end: 20121029
  5. ETHANOL [Suspect]
     Indication: PRODUCT USED FOR UNKNOWN INDICATION
     Route: 048
  6. PARACETAMOL [Suspect]
     Indication: BACK PAIN
     Dates: end: 2004
  7. ASPIRIN +CAFFEINE+ PARACETA(THOMAPYRIN ACETYLSALICYLIC ACID, CAFFEINE, PARACETAMOL) [Concomitant]
  8. IRON SALT (IRON)(IRON) [Concomitant]
  9. MULTIVITMAIN(VITAMIN NOS)(VITAMIN NOS) [Concomitant]

REACTIONS (2)
  - Hepatitis acute [None]
  - Hepatitis alcoholic [None]
